FAERS Safety Report 9782258 (Version 1)
Quarter: 2013Q4

REPORT INFORMATION
  Report Type: Spontaneous
  Country: JP (occurrence: JP)
  Receive Date: 20131226
  Receipt Date: 20131226
  Transmission Date: 20140711
  Serious: Yes (Hospitalization)
  Sender: FDA-Public Use
  Company Number: JP-ASTRAZENECA-2013SE92440

PATIENT
  Sex: Female

DRUGS (1)
  1. SYMBICORT TURBUHALER [Suspect]
     Indication: ASTHMA
     Dosage: 1 DF, FOUR TIMES A DAY (MORNING, NOON, EVENING, AND BEFORE BEDTIME), 60 DOSES
     Route: 055
     Dates: start: 201102

REACTIONS (3)
  - Colitis [Unknown]
  - Fall [Unknown]
  - Nausea [Unknown]
